FAERS Safety Report 6148501-2 (Version None)
Quarter: 2009Q2

REPORT INFORMATION
  Report Type: 
  Country: None (occurrence: None)
  Receive Date: 20090406
  Receipt Date: 20090406
  Transmission Date: 20091009
  Serious: No
  Sender: FDA-Public Use
  Company Number: None

PATIENT
  Age: 58 Year
  Sex: Female
  Weight: 61.2356 kg

DRUGS (1)
  1. DIOVAN [Suspect]
     Indication: BLOOD PRESSURE
     Dosage: 160 MG. ONCE A DAY
     Dates: start: 20080101, end: 20080304

REACTIONS (4)
  - ATRIAL FIBRILLATION [None]
  - TENDERNESS [None]
  - THROMBOSIS [None]
  - VENOUS VALVE RUPTURED [None]
